FAERS Safety Report 5779450-7 (Version None)
Quarter: 2008Q2

REPORT INFORMATION
  Report Type: 
  Country: None (occurrence: None)
  Receive Date: 20080619
  Receipt Date: 20070430
  Transmission Date: 20081010
  Serious: No
  Sender: FDA-Public Use
  Company Number: US-ASTRAZENECA-2007UW08606

PATIENT
  Age: 87 Year
  Sex: Female
  Weight: 64.4 kg

DRUGS (3)
  1. ATACAND [Suspect]
     Route: 048
     Dates: start: 20070408
  2. CARDIZEM CD [Concomitant]
  3. TRILEPTAL [Concomitant]

REACTIONS (2)
  - FATIGUE [None]
  - PERIPHERAL COLDNESS [None]
